FAERS Safety Report 7866306-9 (Version None)
Quarter: 2011Q4

REPORT INFORMATION
  Report Type: 
  Country: None (occurrence: None)
  Receive Date: 20111028
  Receipt Date: 20110209
  Transmission Date: 20120403
  Serious: No
  Sender: FDA-Public Use
  Company Number: US-MYLANLABS-2011S1003009

PATIENT
  Age: 56 Year
  Sex: Male

DRUGS (3)
  1. TRIAMTERENE AND HYDROCHLOROTHIAZIDE [Concomitant]
     Indication: HYPERTENSION
     Route: 048
     Dates: start: 20100101
  2. DIAZEPAM [Suspect]
     Indication: ANXIETY
     Route: 048
     Dates: start: 20090101
  3. DIAZEPAM [Suspect]
     Indication: STRESS
     Route: 048
     Dates: start: 20090101

REACTIONS (3)
  - INTENTIONAL DRUG MISUSE [None]
  - DRUG INEFFECTIVE [None]
  - ANXIETY [None]
